FAERS Safety Report 8122831-7 (Version None)
Quarter: 2012Q1

REPORT INFORMATION
  Report Type: 
  Country: None (occurrence: None)
  Receive Date: 20120208
  Receipt Date: 20120131
  Transmission Date: 20120608
  Serious: Yes (Other)
  Sender: FDA-Public Use
  Company Number: CA-PFIZER INC-2012032001

PATIENT
  Age: 70 Year
  Sex: Male

DRUGS (2)
  1. PANTOPRAZOLE SODIUM [Suspect]
     Indication: ULCER
  2. SYNTHROID [Concomitant]

REACTIONS (1)
  - BLADDER NEOPLASM [None]
